FAERS Safety Report 21378856 (Version 1)
Quarter: 2022Q3

REPORT INFORMATION
  Report Type: Spontaneous
  Country: CZ (occurrence: CZ)
  Receive Date: 20220927
  Receipt Date: 20220927
  Transmission Date: 20221026
  Serious: No
  Sender: FDA-Public Use
  Company Number: CZ-TOLMAR, INC.-22CZ036555

PATIENT
  Age: 69 Year
  Sex: Male
  Weight: 81 kg

DRUGS (1)
  1. ELIGARD [Suspect]
     Active Substance: LEUPROLIDE ACETATE
     Indication: Hormone-dependent prostate cancer
     Dosage: 45 MILLIGRAM, Q 6 MONTH
     Route: 058
     Dates: start: 20220603

REACTIONS (3)
  - Drug ineffective [Recovered/Resolved]
  - Prostatic specific antigen abnormal [Recovered/Resolved]
  - Blood testosterone abnormal [Recovered/Resolved]

NARRATIVE: CASE EVENT DATE: 20220901
